FAERS Safety Report 19750357 (Version 3)
Quarter: 2021Q4

REPORT INFORMATION
  Report Type: Report from Study
  Country: US (occurrence: US)
  Receive Date: 20210826
  Receipt Date: 20211210
  Transmission Date: 20220303
  Serious: Yes (Death, Other)
  Sender: FDA-Public Use
  Company Number: US-GILEAD-2021-0545116

PATIENT
  Age: 6 Day
  Sex: Female
  Weight: 3.3 kg

DRUGS (5)
  1. REMDESIVIR [Suspect]
     Active Substance: REMDESIVIR
     Indication: COVID-19
     Dosage: 2.5 MG/KG, ONCE
     Route: 042
     Dates: start: 20210811, end: 20210811
  2. REMDESIVIR [Suspect]
     Active Substance: REMDESIVIR
     Dosage: 1.25 MG/KG, QD
     Route: 042
     Dates: start: 20210812, end: 20210815
  3. CUROSURF [PHOSPHOLIPIDFRACTION, PORCINE LUNG;SODIUM CHLORIDE] [Concomitant]
     Dosage: UNK
     Dates: start: 20210806
  4. DEXAMETHASONE [Concomitant]
     Active Substance: DEXAMETHASONE
     Dosage: UNK
     Dates: start: 20210806
  5. OXYGEN [Concomitant]
     Active Substance: OXYGEN
     Dosage: UNK
     Dates: start: 202108

REACTIONS (6)
  - Drug ineffective [Fatal]
  - Electrocardiogram ST segment elevation [Recovered/Resolved]
  - Bradycardia [Unknown]
  - COVID-19 pneumonia [Fatal]
  - Respiratory failure [Fatal]
  - Off label use [Recovered/Resolved]

NARRATIVE: CASE EVENT DATE: 20210801
